FAERS Safety Report 5095165-5 (Version None)
Quarter: 2006Q3

REPORT INFORMATION
  Report Type: 
  Country: None (occurrence: None)
  Receive Date: 20060901
  Receipt Date: 20060822
  Transmission Date: 20061208
  Serious: Yes (Other)
  Sender: FDA-Public Use
  Company Number: 2006SE04563

PATIENT
  Age: 19213 Day
  Sex: Female
  Weight: 83 kg

DRUGS (1)
  1. CRESTOR [Suspect]
     Indication: HYPERCHOLESTEROLAEMIA
     Route: 048
     Dates: start: 20060511, end: 20060822

REACTIONS (3)
  - DIZZINESS [None]
  - FALL [None]
  - JOINT SPRAIN [None]
